FAERS Safety Report 4556390-2 (Version None)
Quarter: 2005Q1

REPORT INFORMATION
  Report Type: 
  Country: None (occurrence: None)
  Receive Date: 20050105
  Receipt Date: 20040819
  Transmission Date: 20050727
  Serious: Yes (Other)
  Sender: FDA-Public Use
  Company Number: 20040800369

PATIENT
  Age: 59 Year
  Sex: Male

DRUGS (5)
  1. ISOFLURANE [Suspect]
     Indication: ANAESTHESIA
     Dates: start: 20040602, end: 20040602
  2. PROPOFOL [Concomitant]
  3. ACETAMINOPHEN [Concomitant]
  4. OMEPRAZOLE [Concomitant]
  5. IBUPROFEN [Concomitant]

REACTIONS (1)
  - HEPATOCELLULAR DAMAGE [None]
